FAERS Safety Report 8082668-4 (Version None)
Quarter: 2012Q1

REPORT INFORMATION
  Report Type: 
  Country: None (occurrence: None)
  Receive Date: 20120127
  Receipt Date: 20110222
  Transmission Date: 20120608
  Serious: No
  Sender: FDA-Public Use
  Company Number: US-ABBOTT-11P-163-0707455-00

PATIENT
  Sex: Male
  Weight: 86.26 kg

DRUGS (6)
  1. GABAPENTIN [Concomitant]
     Indication: MUSCLE RELAXANT THERAPY
  2. FOLIC ACID [Concomitant]
     Indication: VITAMIN SUPPLEMENTATION
  3. HUMIRA [Suspect]
     Indication: RHEUMATOID ARTHRITIS
     Dates: start: 20110117
  4. PENTAZOCIN  ACETAMINOTHN [Concomitant]
     Indication: PAIN
  5. PREDNISONE TAB [Concomitant]
     Indication: RHEUMATOID ARTHRITIS
  6. TRAZODONE HCL [Concomitant]
     Indication: INSOMNIA

REACTIONS (1)
  - INJECTION SITE PAIN [None]
